FAERS Safety Report 18609348 (Version 2)
Quarter: 2021Q1

REPORT INFORMATION
  Report Type: Spontaneous
  Country: FR (occurrence: FR)
  Receive Date: 20201214
  Receipt Date: 20210112
  Transmission Date: 20210419
  Serious: Yes (Hospitalization, Other)
  Sender: FDA-Public Use
  Company Number: FR-AUROBINDO-AUR-APL-2020-060826

PATIENT
  Age: 51 Year
  Sex: Female

DRUGS (2)
  1. FLUOXETINE ARROW CAPSULE, HARD 20 MG [Suspect]
     Active Substance: FLUOXETINE HYDROCHLORIDE
     Indication: PRODUCT USED FOR UNKNOWN INDICATION
     Dosage: 2 DOSAGE FORM, DAILY, ONE IN MORNING AND ONE IN THE EVENING
     Route: 065
     Dates: start: 20200918, end: 20200921
  2. LEVOTHYROX [Concomitant]
     Active Substance: LEVOTHYROXINE
     Indication: PRODUCT USED FOR UNKNOWN INDICATION
     Dosage: UNK
     Route: 065

REACTIONS (7)
  - Urticaria [Recovered/Resolved]
  - Palpitations [Recovered/Resolved]
  - Sense of oppression [Recovered/Resolved]
  - Intentional product misuse [Unknown]
  - Hypersensitivity [Recovered/Resolved]
  - Rash macular [Recovered/Resolved]
  - Product substitution issue [Unknown]

NARRATIVE: CASE EVENT DATE: 20200921
